FAERS Safety Report 25550361 (Version 2)
Quarter: 2025Q3

REPORT INFORMATION
  Report Type: Report from Study
  Country: US (occurrence: US)
  Receive Date: 20250714
  Receipt Date: 20250725
  Transmission Date: 20251021
  Serious: No
  Sender: Karo Pharma
  Company Number: US-Karo Pharma-2180487

PATIENT
  Age: 59 Year
  Sex: Female

DRUGS (1)
  1. LAMISIL [Suspect]
     Active Substance: TERBINAFINE HYDROCHLORIDE
     Indication: Pityriasis rubra pilaris

REACTIONS (2)
  - Papule [Unknown]
  - Skin plaque [Recovering/Resolving]
